FAERS Safety Report 24417765 (Version 4)
Quarter: 2025Q3

REPORT INFORMATION
  Report Type: Report from Study
  Country: EU (occurrence: EU)
  Receive Date: 20241009
  Receipt Date: 20250911
  Transmission Date: 20251021
  Serious: No
  Sender: BLUEPRINT MEDICINES
  Company Number: EU-Blueprint Medicines Corporation-SO-BE-2024-002031

PATIENT
  Age: 72 Year
  Sex: Male
  Weight: 72 kg

DRUGS (14)
  1. AVAPRITINIB [Suspect]
     Active Substance: AVAPRITINIB
     Indication: Advanced systemic mastocytosis
     Route: 048
  2. AVAPRITINIB [Suspect]
     Active Substance: AVAPRITINIB
     Indication: Chronic myelomonocytic leukaemia
  3. ASPIRIN [Concomitant]
     Active Substance: ASPIRIN
     Indication: Prophylaxis
     Route: 048
  4. BILASTINE [Concomitant]
     Active Substance: BILASTINE
     Indication: Advanced systemic mastocytosis
     Route: 048
  5. PANTOPRAZOLE [Concomitant]
     Active Substance: PANTOPRAZOLE
     Indication: Dyspepsia
     Route: 048
  6. OLMESARTAN [Concomitant]
     Active Substance: OLMESARTAN
     Indication: Hypertension
     Route: 048
  7. METFORMIN [Concomitant]
     Active Substance: METFORMIN HYDROCHLORIDE
     Indication: Type 2 diabetes mellitus
     Route: 048
  8. ATORVASTATIN [Concomitant]
     Active Substance: ATORVASTATIN
     Indication: Hypercholesterolaemia
     Route: 048
  9. BUMETANIDE [Concomitant]
     Active Substance: BUMETANIDE
     Indication: Face oedema
     Route: 048
     Dates: start: 20240927
  10. ELTROMBOPAG [Concomitant]
     Active Substance: ELTROMBOPAG
     Indication: Thrombocytopenia
     Route: 048
     Dates: start: 202409
  11. ELTROMBOPAG [Concomitant]
     Active Substance: ELTROMBOPAG
     Route: 048
     Dates: start: 20250403, end: 20250818
  12. ELTROMBOPAG [Concomitant]
     Active Substance: ELTROMBOPAG
     Route: 048
     Dates: start: 20250819
  13. Optovit E [Concomitant]
     Indication: Hypovitaminosis
     Route: 065
     Dates: start: 20241023, end: 20250520
  14. MOMETASONE FUROATE [Concomitant]
     Active Substance: MOMETASONE FUROATE
     Indication: Sensation of foreign body
     Route: 065
     Dates: start: 202410

REACTIONS (10)
  - Face oedema [Not Recovered/Not Resolved]
  - Eye oedema [Not Recovered/Not Resolved]
  - Peripheral sensorimotor neuropathy [Not Recovered/Not Resolved]
  - Diarrhoea [Not Recovered/Not Resolved]
  - Hypogeusia [Recovered/Resolved]
  - Sensation of foreign body [Not Recovered/Not Resolved]
  - Orthostatic hypotension [Not Recovered/Not Resolved]
  - Hypovitaminosis [Recovered/Resolved]
  - Urticaria [Not Recovered/Not Resolved]
  - Localised infection [Recovered/Resolved]

NARRATIVE: CASE EVENT DATE: 20240801
